FAERS Safety Report 4725583-3 (Version None)
Quarter: 2005Q3

REPORT INFORMATION
  Report Type: 
  Country: None (occurrence: None)
  Receive Date: 20050722
  Receipt Date: 20050722
  Transmission Date: 20060218
  Serious: Yes (Hospitalization)
  Sender: FDA-Public Use
  Company Number: None

PATIENT
  Age: 63 Year
  Sex: Female

DRUGS (1)
  1. FENTANYL [Suspect]
     Dosage: 100 MCG    INTRAVENOU
     Route: 042

REACTIONS (2)
  - BRADYCARDIA [None]
  - EXTRASYSTOLES [None]
